FAERS Safety Report 10918005 (Version 2)
Quarter: 2015Q3

REPORT INFORMATION
  Report Type: Spontaneous
  Country: ET (occurrence: ET)
  Receive Date: 20150316
  Receipt Date: 20150721
  Transmission Date: 20151125
  Serious: Yes (Hospitalization, Other)
  Sender: FDA-Public Use
  Company Number: ET-PFIZER INC-2015036219

PATIENT
  Age: 20 Year
  Sex: Female
  Weight: 54 kg

DRUGS (1)
  1. ZITHROMAX [Suspect]
     Active Substance: AZITHROMYCIN DIHYDRATE
     Indication: TRACHOMA
     Dosage: 4 X 250 MG TABLETS OR 1GM IN A SINGLE DOSE
     Dates: start: 20150123, end: 20150123

REACTIONS (4)
  - Altered state of consciousness [Recovered/Resolved]
  - Foetal heart rate abnormal [Recovered/Resolved]
  - Anaphylactic shock [Recovered/Resolved]
  - Abdominal pain [Recovered/Resolved]

NARRATIVE: CASE EVENT DATE: 201501
